FAERS Safety Report 4830597-9 (Version None)
Quarter: 2005Q4

REPORT INFORMATION
  Report Type: 
  Country: None (occurrence: None)
  Receive Date: 20051115
  Receipt Date: 20051102
  Transmission Date: 20060501
  Serious: Yes (Other)
  Sender: FDA-Public Use
  Company Number: 2005148157

PATIENT
  Age: 90 Year
  Sex: Female

DRUGS (5)
  1. PREGABALIN (PREGABALIN) [Suspect]
     Indication: NEURALGIA
     Dosage: 75 MG (75 MG, 1 IN 1 D), ORAL
     Route: 048
     Dates: start: 20051001, end: 20051001
  2. GABAPENTIN [Concomitant]
  3. LORMETAZEPAM (LORMETAZEPAM) [Concomitant]
  4. ISCOVER (CLOPIDOGREL SULFATE) [Concomitant]
  5. LAXATIVES (LAXATIVES) [Concomitant]

REACTIONS (4)
  - ARTERIAL INSUFFICIENCY [None]
  - COORDINATION ABNORMAL [None]
  - DYSPHAGIA [None]
  - PERIPHERAL ISCHAEMIA [None]
